FAERS Safety Report 7007683-0 (Version None)
Quarter: 2010Q3

REPORT INFORMATION
  Report Type: 
  Country: None (occurrence: None)
  Receive Date: 20100922
  Receipt Date: 20100913
  Transmission Date: 20110219
  Serious: Yes (Life-Threatening, Hospitalization, Other)
  Sender: FDA-Public Use
  Company Number: CA-PFIZER INC-2010098661

PATIENT
  Age: 57 Year
  Sex: Male
  Weight: 96 kg

DRUGS (10)
  1. SUTENT [Suspect]
     Indication: RENAL CELL CARCINOMA
     Dosage: 50 MG, 1X/DAY FOR 28 DAYS ON, 14 DAYS OFF PER CYCLE
     Route: 048
     Dates: start: 20100408, end: 20100506
  2. TIAZAC [Concomitant]
     Indication: HYPERTENSION
     Dosage: 360 MG, AT BEDTIME
     Route: 048
     Dates: start: 20080101
  3. HYCODAN [Concomitant]
     Indication: COUGH
     Dosage: 5 MG, 1X/DAY
     Route: 048
     Dates: end: 20100503
  4. LIPITOR [Concomitant]
     Indication: DYSLIPIDAEMIA
     Dosage: 20 MG, 1X/DAY
     Route: 048
     Dates: start: 20080101
  5. FRAGMIN [Concomitant]
     Indication: THROMBOSIS PROPHYLAXIS
     Dosage: 150 IU/KG, 1X/DAY
     Dates: start: 20100208
  6. DOCUSATE SODIUM [Concomitant]
     Dosage: UNK
  7. MOTILIUM ^JANSSEN^ [Concomitant]
     Dosage: UNK
  8. PANTOPRAZOLE [Concomitant]
     Dosage: UNK
  9. PROCHLORPERAZINE [Concomitant]
     Dosage: UNK
  10. VENTOLIN [Concomitant]
     Dosage: UNK

REACTIONS (1)
  - CEREBROVASCULAR ACCIDENT [None]
